FAERS Safety Report 21166549 (Version 3)
Quarter: 2022Q3

REPORT INFORMATION
  Report Type: Spontaneous
  Country: US (occurrence: US)
  Receive Date: 20220803
  Receipt Date: 20220908
  Transmission Date: 20221027
  Serious: No
  Sender: FDA-Public Use
  Company Number: US-PFIZER INC-202201022162

PATIENT
  Age: 72 Year
  Sex: Female
  Weight: 47.173 kg

DRUGS (4)
  1. PAXLOVID [Suspect]
     Active Substance: NIRMATRELVIR\RITONAVIR
     Indication: COVID-19 treatment
     Dosage: UNK
     Dates: start: 20220707, end: 20220711
  2. IMBRUVICA [Concomitant]
     Active Substance: IBRUTINIB
     Dosage: 420 UNK
     Dates: start: 20201209, end: 20220707
  3. IMBRUVICA [Concomitant]
     Active Substance: IBRUTINIB
     Dosage: 420 MG, DAILY
     Dates: start: 20220712, end: 20220718
  4. IMBRUVICA [Concomitant]
     Active Substance: IBRUTINIB
     Dosage: UNK
     Dates: start: 20220729

REACTIONS (2)
  - COVID-19 [Recovered/Resolved]
  - Disease recurrence [Recovered/Resolved]

NARRATIVE: CASE EVENT DATE: 20220715
